FAERS Safety Report 12479104 (Version 1)
Quarter: 2016Q2

REPORT INFORMATION
  Report Type: Spontaneous
  Country: CA (occurrence: CA)
  Receive Date: 20160620
  Receipt Date: 20160620
  Transmission Date: 20160815
  Serious: Yes (Other)
  Sender: FDA-Public Use
  Company Number: CA-ROCHE-1778396

PATIENT
  Sex: Female

DRUGS (4)
  1. CELEBREX [Concomitant]
     Active Substance: CELECOXIB
     Route: 048
  2. PLAQUENIL [Concomitant]
     Active Substance: HYDROXYCHLOROQUINE SULFATE
  3. XELJANZ [Concomitant]
     Active Substance: TOFACITINIB CITRATE
     Indication: RHEUMATOID ARTHRITIS
     Route: 048
     Dates: start: 20160515
  4. ACTEMRA [Suspect]
     Active Substance: TOCILIZUMAB
     Indication: RHEUMATOID ARTHRITIS
     Route: 065

REACTIONS (4)
  - Fungal infection [Unknown]
  - Psoriasis [Unknown]
  - Musculoskeletal stiffness [Unknown]
  - Pain [Unknown]
